FAERS Safety Report 5840789-8 (Version None)
Quarter: 2008Q3

REPORT INFORMATION
  Report Type: 
  Country: None (occurrence: None)
  Receive Date: 20080811
  Receipt Date: 20080730
  Transmission Date: 20090109
  Serious: Yes (Other)
  Sender: FDA-Public Use
  Company Number: US-PFIZER INC-2008027279

PATIENT
  Sex: Male
  Weight: 84.09 kg

DRUGS (3)
  1. NEURONTIN [Suspect]
     Indication: PAIN
  2. METHADONE HCL [Concomitant]
  3. TRAZODONE HCL [Concomitant]

REACTIONS (3)
  - ABDOMINAL PAIN UPPER [None]
  - HEADACHE [None]
  - SURGERY [None]
